FAERS Safety Report 10359996 (Version 2)
Quarter: 2014Q3

REPORT INFORMATION
  Report Type: Spontaneous
  Country: US (occurrence: US)
  Receive Date: 20140804
  Receipt Date: 20140813
  Transmission Date: 20150326
  Serious: Yes (Other)
  Sender: FDA-Public Use
  Company Number: US-BAYER-2014-112234

PATIENT
  Age: 40 Year
  Sex: Female

DRUGS (1)
  1. MIRENA [Suspect]
     Active Substance: LEVONORGESTREL
     Indication: CONTRACEPTION
     Dosage: 20 MCG/24HR, CONT
     Route: 015
     Dates: start: 201301, end: 20140214

REACTIONS (11)
  - Medical device discomfort [None]
  - Pelvic infection [None]
  - Pelvic pain [None]
  - Anhedonia [None]
  - Tenderness [None]
  - Uterine pain [None]
  - Fatigue [None]
  - Fungal infection [None]
  - Emotional distress [None]
  - Pelvic inflammatory disease [None]
  - Abdominal distension [None]

NARRATIVE: CASE EVENT DATE: 2014
